FAERS Safety Report 20689312 (Version 2)
Quarter: 2022Q2

REPORT INFORMATION
  Report Type: Spontaneous
  Country: US (occurrence: US)
  Receive Date: 20220408
  Receipt Date: 20220630
  Transmission Date: 20220721
  Serious: No
  Sender: FDA-Public Use
  Company Number: US-SA-SAC20220404000030

PATIENT
  Age: 51 Year
  Sex: Female

DRUGS (1)
  1. DUPIXENT [Suspect]
     Active Substance: DUPILUMAB
     Dosage: 300 MG; FREQUENCY: OTHER
     Route: 058
     Dates: start: 202201

REACTIONS (9)
  - Vision blurred [Unknown]
  - Condition aggravated [Unknown]
  - Periorbital pain [Recovered/Resolved]
  - Eye ulcer [Unknown]
  - Eczema [Unknown]
  - Wound [Unknown]
  - Illness [Unknown]
  - Product dose omission issue [Unknown]
  - Hypersensitivity [Unknown]

NARRATIVE: CASE EVENT DATE: 20220101
